FAERS Safety Report 25249658 (Version 1)
Quarter: 2025Q2

REPORT INFORMATION
  Report Type: Spontaneous
  Country: PR (occurrence: PR)
  Receive Date: 20250429
  Receipt Date: 20250429
  Transmission Date: 20250717
  Serious: Yes (Death, Life-Threatening, Hospitalization, Other)
  Sender: STRIDES
  Company Number: PR-STRIDES ARCOLAB LIMITED-2025SP005152

PATIENT
  Age: 55 Year
  Sex: Female

DRUGS (2)
  1. VANCOMYCIN [Suspect]
     Active Substance: VANCOMYCIN
     Indication: Product used for unknown indication
     Route: 048
  2. ANCEF [Concomitant]
     Active Substance: CEFAZOLIN SODIUM
     Indication: Product used for unknown indication
     Route: 065

REACTIONS (5)
  - Respiratory failure [Fatal]
  - Septic shock [Fatal]
  - Organ failure [Fatal]
  - Drug ineffective [Fatal]
  - Condition aggravated [Fatal]
